FAERS Safety Report 12586220 (Version 1)
Quarter: 2016Q3

REPORT INFORMATION
  Report Type: Spontaneous
  Country: US (occurrence: None)
  Receive Date: 20160722
  Receipt Date: 20160722
  Transmission Date: 20161109
  Serious: Yes (Other)
  Sender: FDA-Public Use
  Company Number: None

PATIENT
  Age: 33 Year
  Weight: 70.31 kg

DRUGS (3)
  1. VITAMIN B12 [Concomitant]
     Active Substance: CYANOCOBALAMIN
  2. LEVOFLOXACIN, 500 MG [Suspect]
     Active Substance: LEVOFLOXACIN
     Indication: BRONCHITIS
     Route: 048
     Dates: start: 20160711, end: 20160711
  3. JUNEL BIRTH CONTROL [Concomitant]

REACTIONS (5)
  - Hallucination [None]
  - Paranoia [None]
  - Nightmare [None]
  - Feeling abnormal [None]
  - Dysphemia [None]

NARRATIVE: CASE EVENT DATE: 20160711
